FAERS Safety Report 8498962-9 (Version None)
Quarter: 2012Q3

REPORT INFORMATION
  Report Type: 
  Country: None (occurrence: None)
  Receive Date: 20120710
  Receipt Date: 20120703
  Transmission Date: 20120928
  Serious: No
  Sender: FDA-Public Use
  Company Number: US-BIOGENIDEC-2012BI023535

PATIENT
  Sex: Male

DRUGS (2)
  1. TYSABRI [Suspect]
     Indication: MULTIPLE SCLEROSIS
     Route: 042
     Dates: start: 20080627, end: 20090630
  2. TYSABRI [Suspect]
     Route: 042
     Dates: start: 20110404

REACTIONS (3)
  - MUSCULAR WEAKNESS [None]
  - BALANCE DISORDER [None]
  - FATIGUE [None]
